FAERS Safety Report 7952040-3 (Version None)
Quarter: 2011Q4

REPORT INFORMATION
  Report Type: 
  Country: None (occurrence: None)
  Receive Date: 20111201
  Receipt Date: 20111116
  Transmission Date: 20120403
  Serious: Yes (Hospitalization, Other)
  Sender: FDA-Public Use
  Company Number: US-WATSON-2011-20022

PATIENT
  Age: 41 Year
  Sex: Female

DRUGS (1)
  1. VERAPAMIL HCL [Suspect]
     Indication: PRODUCT USED FOR UNKNOWN INDICATION
     Dosage: 19.2 G, SINGLE 98O TABS OF 240 MG SR VERAPAMIL)
     Route: 048

REACTIONS (4)
  - INTENTIONAL OVERDOSE [None]
  - ATRIOVENTRICULAR BLOCK COMPLETE [None]
  - HYPOTENSION [None]
  - RENAL FAILURE [None]
